FAERS Safety Report 5831998-2 (Version None)
Quarter: 2008Q3

REPORT INFORMATION
  Report Type: 
  Country: None (occurrence: None)
  Receive Date: 20080729
  Receipt Date: 20080722
  Transmission Date: 20090109
  Serious: Yes (Life-Threatening)
  Sender: FDA-Public Use
  Company Number: 002803

PATIENT
  Age: 42 Year
  Sex: Male

DRUGS (8)
  1. BUSULFEX [Suspect]
     Indication: STEM CELL TRANSPLANT
     Dosage: 24 ML, DAILY DOSE; 32 ML, DAILY DOSE
     Dates: start: 20070925, end: 20070925
  2. BUSULFEX [Suspect]
     Indication: STEM CELL TRANSPLANT
     Dosage: 24 ML, DAILY DOSE; 32 ML, DAILY DOSE
     Dates: start: 20070926, end: 20070928
  3. BUSULFEX [Suspect]
     Indication: STEM CELL TRANSPLANT
     Dosage: 24 ML, DAILY DOSE; 32 ML, DAILY DOSE
     Dates: start: 20070929, end: 20070929
  4. CYCLOPHOSPHAMIDE [Concomitant]
  5. VALPROATE SODIUM [Concomitant]
  6. FILGRASTIM (FILGRASTIM) [Concomitant]
  7. METHOTREXATE [Concomitant]
  8. CYCLOSPORINE [Concomitant]

REACTIONS (6)
  - ANOREXIA [None]
  - DIARRHOEA [None]
  - MALAISE [None]
  - MALIGNANT NEOPLASM PROGRESSION [None]
  - PHLEBITIS [None]
  - STOMATITIS [None]
